FAERS Safety Report 7359711-0 (Version None)
Quarter: 2011Q1

REPORT INFORMATION
  Report Type: 
  Country: None (occurrence: None)
  Receive Date: 20110317
  Receipt Date: 20100920
  Transmission Date: 20110831
  Serious: Yes (Hospitalization, Other)
  Sender: FDA-Public Use
  Company Number: US-BAYER-201021934NA

PATIENT
  Sex: Female
  Weight: 102.27 kg

DRUGS (16)
  1. YASMIN [Suspect]
     Indication: ORAL CONTRACEPTION
     Route: 048
     Dates: start: 20040501, end: 20060101
  2. LEVAQUIN [Concomitant]
  3. EXCEDRIN (MIGRAINE) [Concomitant]
  4. ALBUTEROL INHALER [Concomitant]
     Indication: ASTHMA
     Dates: start: 20040101, end: 20070101
  5. YAZ [Suspect]
     Indication: ORAL CONTRACEPTION
  6. ZITHROMAX [Concomitant]
  7. XENICAL [Concomitant]
     Dosage: 120 MG, TID
     Route: 048
  8. ASCORBIC ACID [Concomitant]
  9. YASMIN [Suspect]
     Indication: MENSTRUAL DISORDER
     Route: 048
     Dates: start: 20060301, end: 20060701
  10. AMOXICILLIN [Concomitant]
  11. PHENTERMINE [Concomitant]
  12. ADVAIR DISKUS 100/50 [Concomitant]
  13. GLUCOFAGE [Concomitant]
     Dosage: 500 MG, TID
     Route: 048
  14. YAZ [Suspect]
     Indication: MENSTRUAL CYCLE MANAGEMENT
     Route: 048
     Dates: start: 20040501, end: 20060101
  15. YAZ [Suspect]
     Indication: POLYCYSTIC OVARIES
     Route: 048
     Dates: start: 20060301, end: 20060701
  16. TOPAMAX [Concomitant]
     Dosage: 100 MG, CONT
     Route: 048

REACTIONS (2)
  - GALLBLADDER DISORDER [None]
  - CHOLELITHIASIS [None]
